FAERS Safety Report 6136479-7 (Version None)
Quarter: 2009Q1

REPORT INFORMATION
  Report Type: 
  Country: None (occurrence: None)
  Receive Date: 20090325
  Receipt Date: 20090317
  Transmission Date: 20090719
  Serious: Yes (Death)
  Sender: FDA-Public Use
  Company Number: 20096441

PATIENT
  Age: 54 Year
  Sex: Male

DRUGS (1)
  1. LIORESAL [Suspect]
     Indication: MUSCLE SPASTICITY
     Dosage: 1100.1 MCG, DAILY, INTRATHECAL
     Route: 037

REACTIONS (1)
  - MYOCARDIAL INFARCTION [None]
